FAERS Safety Report 9057697 (Version 1)
Quarter: 2013Q1

REPORT INFORMATION
  Report Type: Spontaneous
  Country: GB (occurrence: None)
  Receive Date: 20130117
  Receipt Date: 20130117
  Transmission Date: 20140127
  Serious: Yes (Hospitalization)
  Sender: FDA-Public Use
  Company Number: DSA_61893_2013

PATIENT
  Age: 74 Year
  Sex: Male

DRUGS (9)
  1. FLUOROURACIL (FLUOROURACIL) [Suspect]
     Indication: COLORECTAL CANCER METASTATIC
     Route: 040
     Dates: start: 20120829, end: 20120829
  2. AFLIBERCEPT (AFLIBERCEPT) SOLUTION FOR INJECTION [Suspect]
     Indication: COLORECTAL CANCER METASTATIC
     Route: 041
     Dates: start: 20120829, end: 20120829
  3. IRINOTECAN (IRINOTECAN) [Suspect]
     Indication: COLORECTAL CANCER METASTATIC
     Route: 041
     Dates: start: 20120829, end: 20120829
  4. LEUCOVORIN /00566701/ (LEUCOVORIN-FOLINIC ACID) [Suspect]
     Indication: COLORECTAL CANCER METASTATIC
     Route: 041
     Dates: start: 20120829, end: 20120829
  5. CYCLIZINE [Concomitant]
  6. LOPERAMIDE [Concomitant]
  7. CODEINE PHOSPHATE [Concomitant]
  8. G-CSF [Concomitant]
  9. NORMAL SALINE [Concomitant]

REACTIONS (1)
  - Diarrhoea [None]
